FAERS Safety Report 20841162 (Version 2)
Quarter: 2022Q2

REPORT INFORMATION
  Report Type: Spontaneous
  Country: BE (occurrence: BE)
  Receive Date: 20220517
  Receipt Date: 20220601
  Transmission Date: 20220720
  Serious: Yes (Death)
  Sender: FDA-Public Use
  Company Number: BE-002147023-NVSC2022BE105463

PATIENT

DRUGS (4)
  1. RUXOLITINIB [Suspect]
     Active Substance: RUXOLITINIB
     Indication: Essential thrombocythaemia
     Dosage: 20 MG, BID (2X)
     Route: 065
     Dates: start: 202107
  2. RUXOLITINIB [Suspect]
     Active Substance: RUXOLITINIB
     Indication: Myelofibrosis
  3. ANAGRELIDE HYDROCHLORIDE [Concomitant]
     Active Substance: ANAGRELIDE HYDROCHLORIDE
     Indication: Myelofibrosis
     Dosage: UNK
     Route: 065
     Dates: start: 2000
  4. PHENPROCOUMON [Concomitant]
     Active Substance: PHENPROCOUMON
     Indication: Atrial fibrillation
     Dosage: UNK
     Route: 065
     Dates: start: 2012

REACTIONS (2)
  - COVID-19 [Fatal]
  - Anaemia [Fatal]
